FAERS Safety Report 10154872 (Version 1)
Quarter: 2014Q2

REPORT INFORMATION
  Report Type: Spontaneous
  Country: US (occurrence: US)
  Receive Date: 20140506
  Receipt Date: 20140506
  Transmission Date: 20141212
  Serious: Yes (Hospitalization)
  Sender: FDA-Public Use
  Company Number: US-009507513-1405USA001171

PATIENT
  Age: 62 Year
  Sex: Female

DRUGS (4)
  1. PEGINTRON [Suspect]
     Indication: HEPATITIS C
     Dosage: 80 MICROGRAM, ONCE WEEKLY
     Route: 058
     Dates: start: 20140415, end: 20140501
  2. RIBAPAK [Suspect]
     Dosage: UNK
  3. SOVALDI [Suspect]
     Dosage: UNK
  4. OXYCONTIN [Concomitant]
     Dosage: UNK

REACTIONS (1)
  - Dyspnoea [Unknown]
